FAERS Safety Report 10655311 (Version 1)
Quarter: 2014Q4

REPORT INFORMATION
  Report Type: Spontaneous
  Country: US (occurrence: None)
  Receive Date: 20141215
  Receipt Date: 20141215
  Transmission Date: 20150529
  Serious: Yes (Hospitalization)
  Sender: FDA-Public Use
  Company Number: None

PATIENT
  Age: 6 Year
  Sex: Male
  Weight: 31.62 kg

DRUGS (9)
  1. METHYLPHENIDATE [Suspect]
     Active Substance: METHYLPHENIDATE
     Indication: ATTENTION DEFICIT/HYPERACTIVITY DISORDER
     Dosage: 1 PILL
     Route: 048
     Dates: start: 20141209, end: 20141211
  2. KAPVAY [Concomitant]
     Active Substance: CLONIDINE HYDROCHLORIDE
  3. CHLORPROMAZINE [Suspect]
     Active Substance: CHLORPROMAZINE
     Indication: ABNORMAL BEHAVIOUR
     Dosage: 4 PILLS
     Route: 048
     Dates: start: 20140207
  4. CONCERTA [Concomitant]
     Active Substance: METHYLPHENIDATE HYDROCHLORIDE
  5. CHLORPROMAZINE [Suspect]
     Active Substance: CHLORPROMAZINE
     Indication: AGGRESSION
     Dosage: 4 PILLS
     Route: 048
     Dates: start: 20140207
  6. CHLORPROMAZINE [Suspect]
     Active Substance: CHLORPROMAZINE
     Indication: INSOMNIA
     Dosage: 4 PILLS
     Route: 048
     Dates: start: 20140207
  7. CHLORAPROMAZINE [Concomitant]
  8. LITHIUM CITRATE. [Concomitant]
     Active Substance: LITHIUM CITRATE
  9. CHLORPROMAZINE [Suspect]
     Active Substance: CHLORPROMAZINE
     Indication: IMPULSIVE BEHAVIOUR
     Dosage: 4 PILLS
     Route: 048
     Dates: start: 20140207

REACTIONS (1)
  - Priapism [None]

NARRATIVE: CASE EVENT DATE: 20141211
